FAERS Safety Report 18509749 (Version 4)
Quarter: 2022Q3

REPORT INFORMATION
  Report Type: Spontaneous
  Country: JP (occurrence: JP)
  Receive Date: 20201117
  Receipt Date: 20220713
  Transmission Date: 20221027
  Serious: Yes (Death, Other)
  Sender: FDA-Public Use
  Company Number: JP-GSKNCCC-CASE-01083153_AE-36810

PATIENT

DRUGS (77)
  1. MEPOLIZUMAB [Suspect]
     Active Substance: MEPOLIZUMAB
     Indication: Eosinophilic granulomatosis with polyangiitis
     Dosage: 300 MG
     Route: 058
     Dates: start: 20180821, end: 20180821
  2. MEPOLIZUMAB [Suspect]
     Active Substance: MEPOLIZUMAB
     Dosage: 300 MG
     Route: 058
     Dates: start: 20180918, end: 20180918
  3. MEPOLIZUMAB [Suspect]
     Active Substance: MEPOLIZUMAB
     Dosage: 300 MG
     Route: 058
     Dates: start: 20181018, end: 20181018
  4. MEPOLIZUMAB [Suspect]
     Active Substance: MEPOLIZUMAB
     Dosage: 300 MG
     Route: 058
     Dates: start: 20181101, end: 20181101
  5. MEPOLIZUMAB [Suspect]
     Active Substance: MEPOLIZUMAB
     Dosage: 300 MG
     Route: 058
     Dates: start: 20181129, end: 20181129
  6. MEPOLIZUMAB [Suspect]
     Active Substance: MEPOLIZUMAB
     Dosage: 300 MG
     Route: 058
     Dates: start: 20181213, end: 20181213
  7. MEPOLIZUMAB [Suspect]
     Active Substance: MEPOLIZUMAB
     Dosage: 300 MG
     Route: 058
     Dates: start: 20190110, end: 20190110
  8. MEPOLIZUMAB [Suspect]
     Active Substance: MEPOLIZUMAB
     Dosage: 300 MG
     Route: 058
     Dates: start: 20190207, end: 20190207
  9. MEPOLIZUMAB [Suspect]
     Active Substance: MEPOLIZUMAB
     Dosage: 300 MG
     Route: 058
     Dates: start: 20190307, end: 20190307
  10. MEPOLIZUMAB [Suspect]
     Active Substance: MEPOLIZUMAB
     Dosage: 300 MG
     Route: 058
     Dates: start: 20190404, end: 20190404
  11. MEPOLIZUMAB [Suspect]
     Active Substance: MEPOLIZUMAB
     Dosage: 300 MG
     Route: 058
     Dates: start: 20190509, end: 20190509
  12. MEPOLIZUMAB [Suspect]
     Active Substance: MEPOLIZUMAB
     Dosage: 300 MG
     Route: 058
     Dates: start: 20190606, end: 20190606
  13. MEPOLIZUMAB [Suspect]
     Active Substance: MEPOLIZUMAB
     Dosage: 300 MG
     Route: 058
     Dates: start: 20190704, end: 20190704
  14. MEPOLIZUMAB [Suspect]
     Active Substance: MEPOLIZUMAB
     Dosage: 300 MG
     Route: 058
     Dates: start: 20190801, end: 20190801
  15. MEPOLIZUMAB [Suspect]
     Active Substance: MEPOLIZUMAB
     Dosage: 300 MG
     Route: 058
     Dates: start: 20190829, end: 20190829
  16. MEPOLIZUMAB [Suspect]
     Active Substance: MEPOLIZUMAB
     Dosage: 300 MG
     Route: 058
     Dates: start: 20190926, end: 20190926
  17. MEPOLIZUMAB [Suspect]
     Active Substance: MEPOLIZUMAB
     Dosage: 300 MG
     Route: 058
     Dates: start: 20191024, end: 20191024
  18. MEPOLIZUMAB [Suspect]
     Active Substance: MEPOLIZUMAB
     Dosage: 300 MG
     Route: 058
     Dates: start: 20191121, end: 20191121
  19. MEPOLIZUMAB [Suspect]
     Active Substance: MEPOLIZUMAB
     Dosage: 300 MG
     Route: 058
     Dates: start: 20191219, end: 20191219
  20. MEPOLIZUMAB [Suspect]
     Active Substance: MEPOLIZUMAB
     Dosage: 300 MG
     Route: 058
     Dates: start: 20200116, end: 20200116
  21. MEPOLIZUMAB [Suspect]
     Active Substance: MEPOLIZUMAB
     Dosage: 300 MG
     Route: 058
     Dates: start: 20200213, end: 20200213
  22. MEPOLIZUMAB [Suspect]
     Active Substance: MEPOLIZUMAB
     Dosage: 300 MG
     Route: 058
     Dates: start: 20200312, end: 20200312
  23. MEPOLIZUMAB [Suspect]
     Active Substance: MEPOLIZUMAB
     Dosage: 300 MG
     Route: 058
     Dates: start: 20200409, end: 20200409
  24. MEPOLIZUMAB [Suspect]
     Active Substance: MEPOLIZUMAB
     Dosage: 300 MG
     Route: 058
     Dates: start: 20200507, end: 20200507
  25. MEPOLIZUMAB [Suspect]
     Active Substance: MEPOLIZUMAB
     Dosage: 300 MG
     Route: 058
     Dates: start: 20200604, end: 20200604
  26. MEPOLIZUMAB [Suspect]
     Active Substance: MEPOLIZUMAB
     Dosage: 300 MG
     Route: 058
     Dates: start: 20200702, end: 20200702
  27. MEPOLIZUMAB [Suspect]
     Active Substance: MEPOLIZUMAB
     Dosage: 300 MG
     Route: 058
     Dates: start: 20200806, end: 20200806
  28. MEPOLIZUMAB [Suspect]
     Active Substance: MEPOLIZUMAB
     Dosage: 300 MG
     Route: 058
     Dates: start: 20200901, end: 20200901
  29. MEPOLIZUMAB [Suspect]
     Active Substance: MEPOLIZUMAB
     Dosage: 300 MG
     Route: 058
     Dates: start: 20201002, end: 20201002
  30. PREDONINE [Concomitant]
     Active Substance: PREDNISOLONE
     Indication: Eosinophilic granulomatosis with polyangiitis
     Dosage: 30 MG
     Route: 048
     Dates: start: 20180728, end: 20180816
  31. PREDONINE [Concomitant]
     Active Substance: PREDNISOLONE
     Dosage: 25 MG
     Route: 048
     Dates: start: 20180817, end: 20180823
  32. PREDONINE [Concomitant]
     Active Substance: PREDNISOLONE
     Dosage: 20 MG
     Route: 048
     Dates: start: 20180824, end: 20180830
  33. PREDONINE [Concomitant]
     Active Substance: PREDNISOLONE
     Dosage: 17.5 MG
     Route: 048
     Dates: start: 20180831, end: 20180906
  34. PREDONINE [Concomitant]
     Active Substance: PREDNISOLONE
     Dosage: 15 MG
     Route: 048
     Dates: start: 20180907, end: 20180920
  35. PREDONINE [Concomitant]
     Active Substance: PREDNISOLONE
     Dosage: 12.5 MG
     Route: 048
     Dates: start: 20180921, end: 20181114
  36. PREDONINE [Concomitant]
     Active Substance: PREDNISOLONE
     Dosage: 10 MG
     Route: 048
     Dates: start: 20181115
  37. PREDNISOLONE [Concomitant]
     Active Substance: PREDNISOLONE
     Indication: Eosinophilic granulomatosis with polyangiitis
     Dosage: 2 MG
     Route: 048
     Dates: start: 20181115
  38. AZILVA TABLETS [Concomitant]
  39. BAYASPIRIN TABLETS [Concomitant]
     Indication: Thrombosis prophylaxis
  40. FLUITRAN TABLET [Concomitant]
  41. LANSOPRAZOLE-OD TABLETS [Concomitant]
  42. MERCAZOLE TABLETS [Concomitant]
  43. AMLODIN OD TABLETS [Concomitant]
  44. LAXOBERON TABLET [Concomitant]
  45. HUMALOG PEN [Concomitant]
     Active Substance: INSULIN LISPRO
  46. LANTUS XR SOLOSTAR INJECTION [Concomitant]
  47. BENAMBAX INHALATION [Concomitant]
     Indication: Antifungal prophylaxis
     Route: 055
  48. BENAMBAX INHALATION [Concomitant]
     Indication: Antifungal prophylaxis
  49. LASIX [Concomitant]
     Active Substance: FUROSEMIDE
  50. HARNAL D TABLETS [Concomitant]
  51. TSUMURA SHAKUYAKUKANZOTO EXTRACT GRANULES [Concomitant]
  52. FOSRENOL OD TABLET [Concomitant]
  53. NESP INJECTION PLASTIC SYRINGE [Concomitant]
  54. FEBUXOSTAT [Concomitant]
     Active Substance: FEBUXOSTAT
  55. FELBINAC [Concomitant]
     Active Substance: FELBINAC
  56. LOXOPROFEN SODIUM DIHYDRATE [Concomitant]
     Active Substance: LOXOPROFEN SODIUM DIHYDRATE
  57. HEPARINOID OIL-BASED CREAM 0.3% [Concomitant]
     Indication: Eosinophilic granulomatosis with polyangiitis
  58. LOXOPROFEN SODIUM [Concomitant]
     Active Substance: LOXOPROFEN SODIUM
     Indication: Eosinophilic granulomatosis with polyangiitis
  59. REBAMIPIDE TABLETS [Concomitant]
     Indication: Eosinophilic granulomatosis with polyangiitis
  60. GOOFICE TABLET [Concomitant]
     Indication: Eosinophilic granulomatosis with polyangiitis
  61. BETAMETHASONE BUTYRATE PROPIONATE [Concomitant]
     Active Substance: BETAMETHASONE BUTYRATE PROPIONATE
     Indication: Pruritus
     Dosage: UNK UNK, 1D
     Dates: start: 20191106, end: 20200604
  62. BETAMETHASONE BUTYRATE PROPIONATE [Concomitant]
     Active Substance: BETAMETHASONE BUTYRATE PROPIONATE
     Indication: Erythema
  63. RINDERON-VG LOTION [Concomitant]
     Indication: Eczema asteatotic
     Dosage: UNK UNK, 1D
     Dates: start: 20191106, end: 20200604
  64. RINDERON VG [Concomitant]
     Active Substance: BETAMETHASONE VALERATE\GENTAMICIN SULFATE
     Indication: Eczema asteatotic
     Dosage: 5 G, SINGLE
     Dates: start: 20200630, end: 20200630
  65. CLOPIDOGREL BISULFATE [Concomitant]
     Active Substance: CLOPIDOGREL BISULFATE
     Indication: Thrombosis prophylaxis
  66. CLOPIDOGREL BISULFATE [Concomitant]
     Active Substance: CLOPIDOGREL BISULFATE
     Indication: Embolism
  67. AMITIZA CAPSULE [Concomitant]
  68. LUNESTA TABLETS [Concomitant]
  69. ETHYL ICOSAPENTATE GRANULAR CAPSULE [Concomitant]
     Indication: Thrombosis prophylaxis
  70. ATORVASTATIN CALCIUM [Concomitant]
     Active Substance: ATORVASTATIN CALCIUM
  71. SODIUM PICOSULFATE [Concomitant]
     Active Substance: SODIUM PICOSULFATE
  72. MOVICOL [Concomitant]
     Active Substance: POLYETHYLENE GLYCOL 3350\POTASSIUM CHLORIDE\SODIUM BICARBONATE\SODIUM CHLORIDE
  73. NOBELZIN TABLETS [Concomitant]
  74. FUROSEMIDE [Concomitant]
     Active Substance: FUROSEMIDE
  75. SHIGMABITAN COMBINATION CAPSULES [Concomitant]
  76. OXAROL [Concomitant]
     Active Substance: MAXACALCITOL
  77. DARBEPOETIN ALFA [Concomitant]
     Active Substance: DARBEPOETIN ALFA

REACTIONS (2)
  - Sepsis [Fatal]
  - Chronic kidney disease [Fatal]
